FAERS Safety Report 7699622-4 (Version None)
Quarter: 2011Q3

REPORT INFORMATION
  Report Type: 
  Country: None (occurrence: None)
  Receive Date: 20110822
  Receipt Date: 20110809
  Transmission Date: 20111222
  Serious: No
  Sender: FDA-Public Use
  Company Number: US-BIOGENIDEC-2011BI009879

PATIENT
  Sex: Female

DRUGS (2)
  1. AVONEX [Concomitant]
     Indication: MULTIPLE SCLEROSIS
     Route: 030
  2. TYSABRI [Suspect]
     Indication: MULTIPLE SCLEROSIS
     Route: 042
     Dates: start: 20070410

REACTIONS (13)
  - NASOPHARYNGITIS [None]
  - ACCIDENT [None]
  - FALL [None]
  - MUSCULAR WEAKNESS [None]
  - DRUG INEFFECTIVE [None]
  - LIMB INJURY [None]
  - PERONEAL NERVE PALSY [None]
  - DYSPEPSIA [None]
  - GAIT DISTURBANCE [None]
  - DYSPHONIA [None]
  - RHEUMATOID ARTHRITIS [None]
  - LOSS OF CONTROL OF LEGS [None]
  - PAIN IN EXTREMITY [None]
